FAERS Safety Report 9484358 (Version 2)
Quarter: 2013Q3

REPORT INFORMATION
  Report Type: Spontaneous
  Country: CA (occurrence: CA)
  Receive Date: 20130828
  Receipt Date: 20130828
  Transmission Date: 20140515
  Serious: Yes (Death, Hospitalization, Other)
  Sender: FDA-Public Use
  Company Number: CA-AMGEN-KDL334251

PATIENT
  Age: 71 Year
  Sex: Female
  Weight: 39 kg

DRUGS (6)
  1. ENBREL [Suspect]
     Indication: RHEUMATOID ARTHRITIS
     Dosage: UNK UNK, QWK
     Route: 058
     Dates: start: 20030601
  2. DICLOFENAC SODIUM/ MISOPROSTOL [Concomitant]
     Dosage: UNK UNK, UNK
  3. SULFASALAZINE [Concomitant]
  4. LEFLUNOMIDE [Concomitant]
  5. MYOCHRYSINE [Concomitant]
  6. METHOTREXATE [Concomitant]

REACTIONS (10)
  - Death [Fatal]
  - Cardiogenic shock [Unknown]
  - Respiratory failure [Unknown]
  - Cachexia [Unknown]
  - Sepsis [Unknown]
  - Arthritis infective [Unknown]
  - Activities of daily living impaired [Unknown]
  - Chest pain [Recovered/Resolved]
  - Diarrhoea [Recovered/Resolved]
  - Pain [Unknown]
